FAERS Safety Report 6578645-2 (Version None)
Quarter: 2010Q1

REPORT INFORMATION
  Report Type: 
  Country: None (occurrence: None)
  Receive Date: 20100211
  Receipt Date: 20100203
  Transmission Date: 20100710
  Serious: Yes (Other)
  Sender: FDA-Public Use
  Company Number: FR-AMGEN-UK286485

PATIENT
  Sex: Female

DRUGS (3)
  1. ARANESP [Suspect]
     Indication: RENAL FAILURE CHRONIC
     Route: 058
     Dates: start: 20080111, end: 20080208
  2. NEORECORMON [Suspect]
     Route: 058
     Dates: start: 20070821, end: 20080502
  3. TELMISARTAN [Concomitant]
     Dates: end: 20080411

REACTIONS (3)
  - ANTI-ERYTHROPOIETIN ANTIBODY POSITIVE [None]
  - APLASIA PURE RED CELL [None]
  - NORMOCHROMIC NORMOCYTIC ANAEMIA [None]
